FAERS Safety Report 17712085 (Version 1)
Quarter: 2020Q2

REPORT INFORMATION
  Report Type: Spontaneous
  Country: FR (occurrence: FR)
  Receive Date: 20200427
  Receipt Date: 20200427
  Transmission Date: 20200714
  Serious: Yes (Life-Threatening)
  Sender: FDA-Public Use
  Company Number: FR-TEVA-2020-FR-1226657

PATIENT
  Age: 78 Year
  Sex: Male
  Weight: 73 kg

DRUGS (12)
  1. ACEBUTOLOL (CHLORHYDRATE D^) [Concomitant]
     Active Substance: ACEBUTOLOL HYDROCHLORIDE
     Dosage: 400 MG
     Route: 048
  2. ENOXAPARINE SODIQUE ((MAMMIFERE/PORC/MUQUEUSE INTESTINALE)) [Concomitant]
     Active Substance: ENOXAPARIN SODIUM
     Dosage: 4000 IU
     Route: 058
  3. ZOPICLONE [Concomitant]
     Active Substance: ZOPICLONE
     Indication: INSOMNIA
     Dosage: 7.5 MG
     Route: 048
  4. HYDROCHLOROTHIAZIDE. [Concomitant]
     Active Substance: HYDROCHLOROTHIAZIDE
     Indication: HYPERTENSION
     Dosage: 25 MG
     Route: 048
  5. PLAQUENIL 200 MG, COMPRIM? PELLICUL? (HYDROXYCHLOROQUINE PHOSPHATE) [Interacting]
     Active Substance: HYDROXYCHLOROQUINE DIPHOSPHATE
     Indication: CORONAVIRUS INFECTION
     Dosage: 600 MG
     Route: 048
     Dates: start: 20200331
  6. OXAZEPAM. [Concomitant]
     Active Substance: OXAZEPAM
     Dosage: 100 MG
     Route: 048
  7. EFFEXOR [Interacting]
     Active Substance: VENLAFAXINE HYDROCHLORIDE
     Indication: DEPRESSION
     Dosage: 150 MG
     Route: 048
     Dates: start: 20200320, end: 20200402
  8. CHLORHYDRATE DE NICARDIPINE [Concomitant]
     Indication: HYPERTENSION
     Dosage: 60 MG
     Route: 048
  9. RISPERIDONE. [Suspect]
     Active Substance: RISPERIDONE
     Dosage: 2 MG
     Route: 048
  10. MACROGOL 4000 [Concomitant]
     Active Substance: POLYETHYLENE GLYCOL 4000
     Dosage: 2 DF
     Route: 048
  11. AMLODIPINE [Concomitant]
     Active Substance: AMLODIPINE BESYLATE
     Indication: HYPERTENSION
     Dosage: 10 MG
     Route: 048
  12. CHLORHYDRATE DE CLOMIPRAMINE [Concomitant]
     Active Substance: CLOMIPRAMINE HYDROCHLORIDE
     Dosage: 150 MG
     Route: 048

REACTIONS (2)
  - Electrocardiogram QT prolonged [Not Recovered/Not Resolved]
  - Potentiating drug interaction [Not Recovered/Not Resolved]

NARRATIVE: CASE EVENT DATE: 20200320
